FAERS Safety Report 4360897-0 (Version None)
Quarter: 2004Q2

REPORT INFORMATION
  Report Type: 
  Country: None (occurrence: None)
  Receive Date: 20040520
  Receipt Date: 20040217
  Transmission Date: 20050107
  Serious: Yes (Hospitalization)
  Sender: FDA-Public Use
  Company Number: 200410648FR

PATIENT
  Age: 36 Year
  Sex: Male
  Weight: 145 kg

DRUGS (7)
  1. KETEK [Suspect]
     Indication: BRONCHITIS ACUTE
     Route: 048
     Dates: start: 20031129, end: 20031203
  2. PRETERAX [Suspect]
     Indication: HYPERTENSION
     Route: 048
  3. CELESTENE [Suspect]
     Indication: BRONCHITIS ACUTE
     Route: 048
  4. TAREG [Suspect]
     Indication: HYPERTENSION
     Route: 048
  5. PNEUMOREL [Suspect]
     Indication: BRONCHITIS ACUTE
     Route: 048
     Dates: start: 20031129, end: 20031203
  6. DIMETAPP [Concomitant]
     Indication: BRONCHITIS ACUTE
  7. DOLIPRANE [Concomitant]
     Indication: BRONCHITIS ACUTE

REACTIONS (5)
  - ANGINA PECTORIS [None]
  - BLOOD CREATINE PHOSPHOKINASE INCREASED [None]
  - CARDIAC FLUTTER [None]
  - CONGESTIVE CARDIOMYOPATHY [None]
  - GENERAL PHYSICAL HEALTH DETERIORATION [None]
